FAERS Safety Report 5419799-0 (Version None)
Quarter: 2007Q3

REPORT INFORMATION
  Report Type: 
  Country: None (occurrence: None)
  Receive Date: 20070820
  Receipt Date: 20070815
  Transmission Date: 20080115
  Serious: Yes (Hospitalization, Other)
  Sender: FDA-Public Use
  Company Number: US-ASTRAZENECA-2007UW19655

PATIENT
  Age: 65 Year
  Sex: Female
  Weight: 45.5 kg

DRUGS (6)
  1. TOPROL-XL [Suspect]
     Route: 048
  2. PROCRIT [Suspect]
     Indication: ANAEMIA OF MALIGNANT DISEASE
     Route: 058
     Dates: start: 19990101
  3. PROCRIT [Suspect]
     Route: 058
     Dates: start: 20070601
  4. ARANESP [Suspect]
     Indication: ANAEMIA
  5. RILMAZAFONE [Suspect]
  6. INDERAL [Concomitant]

REACTIONS (8)
  - BLOOD PRESSURE INCREASED [None]
  - BLOOD SODIUM DECREASED [None]
  - ERYTHEMA [None]
  - FLUID RETENTION [None]
  - HEADACHE [None]
  - OEDEMA PERIPHERAL [None]
  - PRURITUS [None]
  - THERAPEUTIC RESPONSE DECREASED [None]
